FAERS Safety Report 18127213 (Version 1)
Quarter: 2020Q3

REPORT INFORMATION
  Report Type: Other
  Country: CN (occurrence: CN)
  Receive Date: 20200810
  Receipt Date: 20200810
  Transmission Date: 20201103
  Serious: Yes (Hospitalization, Other)
  Sender: FDA-Public Use
  Company Number: CN-ROCHE-2654517

PATIENT
  Sex: Male

DRUGS (1)
  1. OSELTAMIVIR [Suspect]
     Active Substance: OSELTAMIVIR
     Indication: PRODUCT USED FOR UNKNOWN INDICATION
     Route: 064

REACTIONS (5)
  - Skin disorder [Unknown]
  - Foetal heart rate increased [Unknown]
  - Foetal exposure during pregnancy [Unknown]
  - Skin fragility [Unknown]
  - Pityriasis [Recovering/Resolving]
